FAERS Safety Report 4812216-0 (Version None)
Quarter: 2005Q4

REPORT INFORMATION
  Report Type: 
  Country: None (occurrence: None)
  Receive Date: 20051028
  Receipt Date: 20040917
  Transmission Date: 20060501
  Serious: No
  Sender: FDA-Public Use
  Company Number: US-GLAXOSMITHKLINE-A0526184A

PATIENT
  Age: 56 Year
  Sex: Female

DRUGS (7)
  1. ADVAIR DISKUS 100/50 [Suspect]
     Indication: DRUG USE FOR UNKNOWN INDICATION
     Route: 055
     Dates: start: 20021101
  2. SINGULAIR [Concomitant]
  3. BEXTRA [Concomitant]
  4. SKELAXIN [Concomitant]
  5. ALTACE [Concomitant]
  6. ELAVIL [Concomitant]
  7. CLARINEX [Concomitant]

REACTIONS (2)
  - CANDIDIASIS [None]
  - PHARMACEUTICAL PRODUCT COMPLAINT [None]
